FAERS Safety Report 15641445 (Version 2)
Quarter: 2018Q4

REPORT INFORMATION
  Report Type: Spontaneous
  Country: JP (occurrence: JP)
  Receive Date: 20181120
  Receipt Date: 20181219
  Transmission Date: 20190205
  Serious: Yes (Other)
  Sender: FDA-Public Use
  Company Number: JP-ASTRAZENECA-2018SF51069

PATIENT
  Age: 69 Year
  Sex: Female

DRUGS (2)
  1. PEMETREXED. [Concomitant]
     Active Substance: PEMETREXED
  2. IRESSA [Suspect]
     Active Substance: GEFITINIB
     Indication: LUNG NEOPLASM MALIGNANT
     Route: 048

REACTIONS (1)
  - Malignant neoplasm progression [Unknown]
